FAERS Safety Report 7183979-7 (Version None)
Quarter: 2010Q4

REPORT INFORMATION
  Report Type: 
  Country: None (occurrence: None)
  Receive Date: 20101222
  Receipt Date: 20101220
  Transmission Date: 20110411
  Serious: Yes (Death, Other)
  Sender: FDA-Public Use
  Company Number: NL-ROCHE-749524

PATIENT

DRUGS (4)
  1. CAPECITABINE [Suspect]
     Dosage: ON DAYS 1- 14, EVERY 3 WEEKS
     Route: 048
  2. EPIRUBICIN [Suspect]
     Dosage: ON DAY 1 OF EVERY CYCLE, EVERY 3 WEEKS
     Route: 040
  3. CISPLATIN [Suspect]
     Dosage: ON DAY 1 OF EVERY CYCLE, OVER 3 H FOLLOWED BY HYDRATION, EVERY 3 WEEKS
     Route: 042
  4. PRAVASTATIN [Suspect]
     Dosage: FROM DAY 1 OF THE 1ST CYCLE TO DAY 21 OF THE LAST ECC CYCLE.
     Route: 065

REACTIONS (10)
  - ANAEMIA [None]
  - DEATH [None]
  - DIARRHOEA [None]
  - FEBRILE NEUTROPENIA [None]
  - LETHARGY [None]
  - NAUSEA [None]
  - NEUROPATHY PERIPHERAL [None]
  - NEUTROPENIA [None]
  - THROMBOCYTOPENIA [None]
  - VOMITING [None]
